FAERS Safety Report 18137201 (Version 10)
Quarter: 2021Q1

REPORT INFORMATION
  Report Type: Report from Study
  Country: FR (occurrence: FR)
  Receive Date: 20200811
  Receipt Date: 20210121
  Transmission Date: 20210419
  Serious: Yes (Hospitalization, Other)
  Sender: FDA-Public Use
  Company Number: NVSC2020FR202903

PATIENT
  Age: 12 Month
  Sex: Male
  Weight: 6.65 kg

DRUGS (4)
  1. MACROGOL [Concomitant]
     Active Substance: POLYETHYLENE GLYCOLS
     Indication: PRODUCT USED FOR UNKNOWN INDICATION
     Dosage: UNK
     Route: 065
     Dates: start: 20200808, end: 20200815
  2. ZOLGENSMA [Suspect]
     Active Substance: ONASEMNOGENE ABEPARVOVEC-XIOI
     Dosage: 5.5 ML, ONCE/SINGLE (7 VIALS)
     Route: 042
  3. PREDNISONE. [Concomitant]
     Active Substance: PREDNISONE
     Indication: PRODUCT USED FOR UNKNOWN INDICATION
     Dosage: 2 MG/KG, QD
     Route: 042
     Dates: start: 20200708, end: 20200710
  4. ZOLGENSMA [Suspect]
     Active Substance: ONASEMNOGENE ABEPARVOVEC-XIOI
     Indication: SPINAL MUSCULAR ATROPHY
     Dosage: 38.5 ML (7.7 X 1014 VG)
     Route: 042
     Dates: start: 20200707

REACTIONS (23)
  - Hepatic failure [Recovering/Resolving]
  - Decreased appetite [Recovering/Resolving]
  - Thrombocytopenia [Recovering/Resolving]
  - Aspartate aminotransferase increased [Unknown]
  - Drug-induced liver injury [Unknown]
  - White blood cell count decreased [Recovered/Resolved]
  - Pyrexia [Recovered/Resolved]
  - White blood cell count decreased [Not Recovered/Not Resolved]
  - Nausea [Recovering/Resolving]
  - Lymphocyte count decreased [Unknown]
  - Fatigue [Recovering/Resolving]
  - Hypertension [Unknown]
  - Pyelonephritis acute [Unknown]
  - Hepatocellular injury [Not Recovered/Not Resolved]
  - Blood pressure diastolic increased [Unknown]
  - Blood pressure systolic increased [Unknown]
  - Prothrombin time abnormal [Recovered/Resolved]
  - Gamma-glutamyltransferase increased [Unknown]
  - Alanine aminotransferase increased [Unknown]
  - Neutropenia [Recovered/Resolved]
  - Blood creatine phosphokinase abnormal [Recovered/Resolved]
  - Anaemia [Unknown]
  - Hypochromic anaemia [Unknown]

NARRATIVE: CASE EVENT DATE: 20200708
